FAERS Safety Report 5817584-9 (Version None)
Quarter: 2008Q3

REPORT INFORMATION
  Report Type: 
  Country: None (occurrence: None)
  Receive Date: 20080716
  Receipt Date: 20080702
  Transmission Date: 20090109
  Serious: Yes (Other)
  Sender: FDA-Public Use
  Company Number: S08-FRA-01560-01

PATIENT
  Age: 83 Year
  Sex: Male

DRUGS (6)
  1. CITALOPRAM HYDROBROMIDE [Suspect]
     Dosage: ORAL
     Route: 048
     Dates: end: 20080331
  2. ATHYMIL (MIANSERIN HYDROCHLORIDE) (30 MILLIGRAM, UNKNOWN) [Suspect]
     Indication: FAILURE TO THRIVE
     Dosage: 30 MG, (30 MG, 1 IN 1 D), ORAL
     Route: 048
     Dates: start: 20080331, end: 20080331
  3. URBANYL (CLOBAZAM) [Suspect]
     Dosage: ORAL
     Route: 048
     Dates: end: 20080331
  4. NEURONTIN [Suspect]
     Dosage: ORAL
     Route: 048
  5. OFLOCET (OFLOXACIN) (OFLOXACIN) [Concomitant]
  6. AUGMENTIN '125' [Concomitant]

REACTIONS (4)
  - COMA [None]
  - DRUG INTERACTION [None]
  - PARTIAL SEIZURES [None]
  - UNRESPONSIVE TO STIMULI [None]
